FAERS Safety Report 8249376-8 (Version None)
Quarter: 2012Q1

REPORT INFORMATION
  Report Type: 
  Country: None (occurrence: None)
  Receive Date: 20120327
  Receipt Date: 20120316
  Transmission Date: 20120608
  Serious: Yes (Other)
  Sender: FDA-Public Use
  Company Number: 2012SP014884

PATIENT
  Age: 3 Year
  Sex: Male

DRUGS (1)
  1. CELESTAMINE TAB [Suspect]
     Indication: PRODUCT USED FOR UNKNOWN INDICATION
     Dosage: 1 ML;PO
     Route: 048
     Dates: start: 20120301, end: 20120301

REACTIONS (6)
  - TONGUE PARALYSIS [None]
  - PALLOR [None]
  - HYPERHIDROSIS [None]
  - FEELING COLD [None]
  - MYDRIASIS [None]
  - HYPOPNOEA [None]
